FAERS Safety Report 10776572 (Version 1)
Quarter: 2015Q1

REPORT INFORMATION
  Report Type: Spontaneous
  Country: US (occurrence: US)
  Receive Date: 20150209
  Receipt Date: 20150209
  Transmission Date: 20150721
  Serious: No
  Sender: FDA-Public Use
  Company Number: US-GLAXOSMITHKLINE-A1078583A

PATIENT

DRUGS (14)
  1. JALYN [Suspect]
     Active Substance: DUTASTERIDE\TAMSULOSIN HYDROCHLORIDE
     Indication: PROSTATOMEGALY
  2. OMEPRAZOLE. [Concomitant]
     Active Substance: OMEPRAZOLE
  3. K-DUR [Concomitant]
     Active Substance: POTASSIUM CHLORIDE
  4. COZAAR [Concomitant]
     Active Substance: LOSARTAN POTASSIUM
  5. SYNTHROID [Concomitant]
     Active Substance: LEVOTHYROXINE SODIUM
  6. LIPITOR [Concomitant]
     Active Substance: ATORVASTATIN CALCIUM
  7. NORVASC [Concomitant]
     Active Substance: AMLODIPINE BESYLATE
  8. NOVOLIN [Concomitant]
     Active Substance: INSULIN HUMAN
  9. COUMADIN [Concomitant]
     Active Substance: WARFARIN SODIUM
  10. RANEXA [Concomitant]
     Active Substance: RANOLAZINE
  11. METOPROLOL [Concomitant]
     Active Substance: METOPROLOL
  12. LASIX [Concomitant]
     Active Substance: FUROSEMIDE
  13. JALYN [Suspect]
     Active Substance: DUTASTERIDE\TAMSULOSIN HYDROCHLORIDE
     Indication: URINARY TRACT DISORDER
     Route: 048
     Dates: start: 201405
  14. NITRO-DUR [Concomitant]
     Active Substance: NITROGLYCERIN

REACTIONS (3)
  - Eructation [Unknown]
  - Dyspnoea [Unknown]
  - Heart rate increased [Unknown]

NARRATIVE: CASE EVENT DATE: 201406
